FAERS Safety Report 4333958-X (Version None)
Quarter: 2004Q2

REPORT INFORMATION
  Report Type: 
  Country: None (occurrence: None)
  Receive Date: 20040402
  Receipt Date: 20040317
  Transmission Date: 20050107
  Serious: Yes (Hospitalization)
  Sender: FDA-Public Use
  Company Number: 2004US000346

PATIENT
  Age: 16 Year
  Sex: Female

DRUGS (6)
  1. PROGRAF [Suspect]
     Indication: RENAL TRANSPLANT
     Dosage: 3.00 MG, BID, ORAL
     Route: 048
  2. ZOLOFT [Suspect]
     Dates: end: 20040301
  3. PREDNISONE [Concomitant]
  4. SEPTRA [Concomitant]
  5. PEPCID [Concomitant]
  6. VALCYTE (VALGANCICLOVIR HYDROCHLORIDE)UNK TO UNK [Concomitant]

REACTIONS (3)
  - CONVULSION [None]
  - DRUG INTERACTION [None]
  - HEMIPARESIS [None]
